FAERS Safety Report 10048909 (Version 1)
Quarter: 2014Q1

REPORT INFORMATION
  Report Type: Spontaneous
  Country: US (occurrence: US)
  Receive Date: 20140331
  Receipt Date: 20140331
  Transmission Date: 20141002
  Serious: No
  Sender: FDA-Public Use
  Company Number: US-009507513-1403USA002653

PATIENT
  Age: 3 Year
  Sex: Female
  Weight: 12.7 kg

DRUGS (2)
  1. CLARITIN ORAL SOLUTION [Suspect]
     Indication: HYPERSENSITIVITY
     Dosage: 30 MG, ONCE
     Route: 048
     Dates: start: 20140221
  2. CLARITIN ORAL SOLUTION [Suspect]
     Dosage: 5 MG, QD
     Route: 048

REACTIONS (2)
  - Accidental overdose [Recovered/Resolved]
  - Accidental exposure to product by child [Recovered/Resolved]
